FAERS Safety Report 8383403 (Version 5)
Quarter: 2015Q1

REPORT INFORMATION
  Report Type: Spontaneous
  Country: US (occurrence: US)
  Receive Date: 20120201
  Receipt Date: 20150310
  Transmission Date: 20150721
  Serious: Yes (Hospitalization, Congenital Anomaly, Other)
  Sender: FDA-Public Use
  Company Number: US-GLAXOSMITHKLINE-A0963967A

PATIENT
  Age: 0 Day
  Sex: Male

DRUGS (4)
  1. PAXIL [Suspect]
     Active Substance: PAROXETINE HYDROCHLORIDE
     Indication: DEPRESSION
  2. PAXIL [Suspect]
     Active Substance: PAROXETINE HYDROCHLORIDE
     Indication: ANXIETY
     Dosage: 50 MG, UNK
     Route: 064
     Dates: start: 200303
  3. PAXIL CR [Suspect]
     Active Substance: PAROXETINE HYDROCHLORIDE
     Indication: DEPRESSION
  4. PAXIL CR [Suspect]
     Active Substance: PAROXETINE HYDROCHLORIDE
     Indication: ANXIETY
     Dosage: 25 MG, UNK
     Route: 064
     Dates: start: 200311, end: 20040504

REACTIONS (11)
  - Adenoiditis [Unknown]
  - Bronchial hyperreactivity [Unknown]
  - Deafness neurosensory [Unknown]
  - Adenoidal hypertrophy [Unknown]
  - Foetal exposure during pregnancy [Unknown]
  - Talipes [Unknown]
  - Otitis media chronic [Unknown]
  - Asthma [Unknown]
  - Attention deficit/hyperactivity disorder [Unknown]
  - Cardiac arrest [Unknown]
  - Arrhythmia [Unknown]

NARRATIVE: CASE EVENT DATE: 20040612
